FAERS Safety Report 5997378-4 (Version None)
Quarter: 2008Q4

REPORT INFORMATION
  Report Type: 
  Country: None (occurrence: None)
  Receive Date: 20081212
  Receipt Date: 20081110
  Transmission Date: 20090506
  Serious: No
  Sender: FDA-Public Use
  Company Number: US-ABBOTT-08P-163-0487066-00

PATIENT
  Sex: Female

DRUGS (4)
  1. HUMIRA [Suspect]
     Indication: CROHN'S DISEASE
     Route: 058
     Dates: start: 20080701
  2. MESALAMINE [Concomitant]
     Indication: CROHN'S DISEASE
  3. METOCLOPRAMIDE HYDROCHLORIDE [Concomitant]
     Indication: NAUSEA
  4. MACROGOL [Concomitant]
     Indication: CONSTIPATION

REACTIONS (3)
  - ABDOMINAL PAIN [None]
  - DIARRHOEA [None]
  - VOMITING [None]
